FAERS Safety Report 15173371 (Version 2)
Quarter: 2018Q4

REPORT INFORMATION
  Report Type: Spontaneous
  Country: US (occurrence: US)
  Receive Date: 20180720
  Receipt Date: 20181024
  Transmission Date: 20190204
  Serious: Yes (Death, Other)
  Sender: FDA-Public Use
  Company Number: US-BAYER-2018-131753

PATIENT
  Age: 63 Year
  Sex: Male

DRUGS (2)
  1. XOFIGO [Suspect]
     Active Substance: RADIUM RA-223 DICHLORIDE
     Indication: PROSTATE CANCER METASTATIC
     Dosage: UNK
  2. XOFIGO [Suspect]
     Active Substance: RADIUM RA-223 DICHLORIDE
     Indication: METASTASES TO BONE
     Dosage: 182 UCI
     Route: 042
     Dates: start: 20180601, end: 20180601

REACTIONS (4)
  - Haemoglobin decreased [Not Recovered/Not Resolved]
  - Influenza like illness [None]
  - Death [Fatal]
  - Blood count abnormal [None]

NARRATIVE: CASE EVENT DATE: 2018
